FAERS Safety Report 22535996 (Version 1)
Quarter: 2023Q2

REPORT INFORMATION
  Report Type: Spontaneous
  Country: RO (occurrence: RO)
  Receive Date: 20230608
  Receipt Date: 20230608
  Transmission Date: 20230722
  Serious: Yes (Other)
  Sender: FDA-Public Use
  Company Number: RO-ABBVIE-5279348

PATIENT
  Sex: Male

DRUGS (2)
  1. VENETOCLAX [Suspect]
     Active Substance: VENETOCLAX
     Indication: Chronic lymphocytic leukaemia
     Dosage: 20-400 MG/DAY
     Route: 048
     Dates: start: 20230221
  2. OBINUTUZUMAB [Concomitant]
     Active Substance: OBINUTUZUMAB
     Indication: Chronic lymphocytic leukaemia
     Dates: start: 20230117

REACTIONS (16)
  - Dyspnoea [Unknown]
  - Hyperhidrosis [Unknown]
  - Vertigo [Unknown]
  - Heart rate increased [Unknown]
  - Oxygen saturation decreased [Unknown]
  - Lymphadenopathy [Unknown]
  - Abdominal lymphadenopathy [Unknown]
  - Hepatomegaly [Unknown]
  - Splenomegaly [Unknown]
  - Umbilical hernia [Unknown]
  - Erythema [Unknown]
  - Tumour marker increased [Unknown]
  - Ultrasound scan abnormal [Unknown]
  - Lymphadenopathy mediastinal [Unknown]
  - Hilar lymphadenopathy [Unknown]
  - Collateral circulation [Unknown]

NARRATIVE: CASE EVENT DATE: 20230101
